FAERS Safety Report 19187150 (Version 2)
Quarter: 2021Q2

REPORT INFORMATION
  Report Type: Spontaneous
  Country: IT (occurrence: IT)
  Receive Date: 20210427
  Receipt Date: 20210510
  Transmission Date: 20210717
  Serious: Yes (Death)
  Sender: FDA-Public Use
  Company Number: IT-ROCHE-2811891

PATIENT
  Age: 73 Year
  Sex: Male

DRUGS (13)
  1. MEDROL [Suspect]
     Active Substance: METHYLPREDNISOLONE
     Indication: VASCULITIS
     Route: 048
  2. BACTRIM [Concomitant]
     Active Substance: SULFAMETHOXAZOLE\TRIMETHOPRIM
  3. ROCALTROL [Concomitant]
     Active Substance: CALCITRIOL
  4. PANTOPRAZOLE [Concomitant]
     Active Substance: PANTOPRAZOLE
  5. SINTROM [Concomitant]
     Active Substance: ACENOCOUMAROL
  6. BISOPROLOL FUMARATE. [Concomitant]
     Active Substance: BISOPROLOL FUMARATE
  7. TRUXIMA [Suspect]
     Active Substance: RITUXIMAB-ABBS
     Indication: MICROSCOPIC POLYANGIITIS
     Route: 042
     Dates: start: 20210120
  8. TRUXIMA [Suspect]
     Active Substance: RITUXIMAB-ABBS
     Indication: VASCULITIS
  9. DIBASE [Concomitant]
     Active Substance: CHOLECALCIFEROL
  10. RANEXA [Concomitant]
     Active Substance: RANOLAZINE
  11. LASIX [Concomitant]
     Active Substance: FUROSEMIDE
  12. ALENDRONATE SODIUM. [Concomitant]
     Active Substance: ALENDRONATE SODIUM
  13. ROSUVASTATIN CALCIUM. [Concomitant]
     Active Substance: ROSUVASTATIN CALCIUM

REACTIONS (3)
  - Pneumonitis [Fatal]
  - Sepsis [Fatal]
  - Soft tissue infection [Fatal]

NARRATIVE: CASE EVENT DATE: 20210310
